FAERS Safety Report 17043035 (Version 1)
Quarter: 2019Q4

REPORT INFORMATION
  Report Type: Report from Study
  Country: IT (occurrence: IT)
  Receive Date: 20191118
  Receipt Date: 20191118
  Transmission Date: 20200122
  Serious: Yes (Other)
  Sender: FDA-Public Use
  Company Number: IT-PFIZER INC-2019491023

PATIENT
  Age: 55 Year
  Sex: Female

DRUGS (3)
  1. METHOTREXATE SODIUM. [Suspect]
     Active Substance: METHOTREXATE SODIUM
     Indication: SERPIGINOUS CHOROIDITIS
     Dosage: 15 MG, WEEKLY
  2. PREDNISONE. [Suspect]
     Active Substance: PREDNISONE
     Indication: SERPIGINOUS CHOROIDITIS
     Dosage: 7 MG, 1X/DAY
  3. DEXAMETHASONE. [Concomitant]
     Active Substance: DEXAMETHASONE
     Indication: SERPIGINOUS CHOROIDITIS
     Dosage: 0.7 MG, ONE INJECTION

REACTIONS (2)
  - Hypertension [Unknown]
  - Cardiovascular disorder [Unknown]
